FAERS Safety Report 21552536 (Version 2)
Quarter: 2023Q1

REPORT INFORMATION
  Report Type: Report from Study
  Country: US (occurrence: US)
  Receive Date: 20221104
  Receipt Date: 20230214
  Transmission Date: 20230418
  Serious: Yes (Other)
  Sender: FDA-Public Use
  Company Number: US-UCBSA-2022062988

PATIENT
  Age: 70 Year
  Sex: Female

DRUGS (1)
  1. LEVETIRACETAM [Suspect]
     Active Substance: LEVETIRACETAM
     Indication: Seizure
     Dosage: 500 MILLIGRAM, 2X/DAY (BID)

REACTIONS (5)
  - Cataract [Recovered/Resolved]
  - Cataract operation [Recovered/Resolved]
  - Atrial fibrillation [Unknown]
  - Nausea [Unknown]
  - Viral infection [Unknown]

NARRATIVE: CASE EVENT DATE: 20220914
